FAERS Safety Report 9402653 (Version 2)
Quarter: 2013Q3

REPORT INFORMATION
  Report Type: Spontaneous
  Country: US (occurrence: US)
  Receive Date: 20130716
  Receipt Date: 20130718
  Transmission Date: 20140515
  Serious: No
  Sender: FDA-Public Use
  Company Number: US-BAYER-2013-084765

PATIENT
  Age: 75 Year
  Sex: Male
  Weight: 65.76 kg

DRUGS (3)
  1. ALEVE TABLET [Suspect]
     Indication: ANALGESIC THERAPY
     Dosage: UNK DF, UNK
     Route: 048
  2. ALEVE GELCAPS [Suspect]
     Indication: ANALGESIC THERAPY
     Dosage: UNK DF, OTHER FREQUENCY
     Route: 048
  3. LYRICA [Concomitant]

REACTIONS (1)
  - Foreign body [Recovered/Resolved]
